FAERS Safety Report 4438711-4 (Version None)
Quarter: 2004Q3

REPORT INFORMATION
  Report Type: 
  Country: None (occurrence: None)
  Receive Date: 20040830
  Receipt Date: 20040830
  Transmission Date: 20050211
  Serious: Yes (Life-Threatening, Hospitalization)
  Sender: FDA-Public Use
  Company Number: None

PATIENT
  Age: 54 Year
  Sex: Female
  Weight: 72.5755 kg

DRUGS (1)
  1. TAXOTERE [Suspect]
     Indication: BREAST CANCER
     Dosage: Q WEEK FOR INTRAVENOUS
     Route: 042
     Dates: start: 20040503, end: 20040719

REACTIONS (1)
  - ACUTE RESPIRATORY DISTRESS SYNDROME [None]
